FAERS Safety Report 4826496-9 (Version None)
Quarter: 2005Q4

REPORT INFORMATION
  Report Type: 
  Country: None (occurrence: None)
  Receive Date: 20051111
  Receipt Date: 20050624
  Transmission Date: 20060501
  Serious: Yes (Other)
  Sender: FDA-Public Use
  Company Number: US-MERCK-0506USA03588

PATIENT
  Age: 56 Year
  Sex: Female
  Weight: 66 kg

DRUGS (2)
  1. VIOXX [Suspect]
     Indication: OSTEOARTHRITIS
     Route: 048
     Dates: start: 20001003, end: 20020113
  2. VITAMINS (UNSPECIFIED) [Concomitant]
     Route: 065

REACTIONS (12)
  - BLOOD PRESSURE INCREASED [None]
  - DIARRHOEA [None]
  - HAEMATOCHEZIA [None]
  - MENSTRUATION IRREGULAR [None]
  - MUSCLE SPASMS [None]
  - OSTEOPENIA [None]
  - RETINAL HAEMORRHAGE [None]
  - RETINAL SCAR [None]
  - RETINAL VEIN OCCLUSION [None]
  - SKIN LACERATION [None]
  - URINARY TRACT INFECTION [None]
  - VOMITING [None]
